FAERS Safety Report 9430887 (Version 1)
Quarter: 2013Q3

REPORT INFORMATION
  Report Type: Spontaneous
  Country: US (occurrence: US)
  Receive Date: 20130730
  Receipt Date: 20130730
  Transmission Date: 20140515
  Serious: No
  Sender: FDA-Public Use
  Company Number: US-ABBOTT-13P-163-1108318-00

PATIENT
  Age: 39 Year
  Sex: Male
  Weight: 118.04 kg

DRUGS (2)
  1. NIASPAN (COATED) [Suspect]
     Indication: LOW DENSITY LIPOPROTEIN INCREASED
     Dates: start: 20130617, end: 20130619
  2. TRILIPIX [Concomitant]
     Indication: PRODUCT USED FOR UNKNOWN INDICATION

REACTIONS (6)
  - Headache [Recovered/Resolved]
  - Flushing [Unknown]
  - Hot flush [Recovered/Resolved]
  - Erythema [Recovered/Resolved]
  - Dizziness [Recovered/Resolved]
  - Lethargy [Recovered/Resolved]
